FAERS Safety Report 8956437 (Version 2)
Quarter: 2013Q4

REPORT INFORMATION
  Report Type: Report from Study
  Country: NL (occurrence: NL)
  Receive Date: 20121210
  Receipt Date: 20131204
  Transmission Date: 20140711
  Serious: Yes (Hospitalization)
  Sender: FDA-Public Use
  Company Number: NL-SANOFI-AVENTIS-2012SA087925

PATIENT
  Age: 66 Year
  Sex: Male

DRUGS (4)
  1. CABAZITAXEL [Suspect]
     Indication: PROSTATE CANCER
     Route: 041
     Dates: start: 20121026, end: 20121026
  2. CABAZITAXEL [Suspect]
     Indication: PROSTATE CANCER
     Route: 041
     Dates: start: 20121116, end: 20121116
  3. BUDESONIDE [Suspect]
     Indication: PROSTATE CANCER
     Route: 048
     Dates: start: 20121024, end: 20121116
  4. PREDNISOLONE [Suspect]
     Indication: PROSTATE CANCER
     Route: 048
     Dates: start: 201106

REACTIONS (2)
  - Pulmonary embolism [Recovered/Resolved]
  - Sepsis [Recovered/Resolved]
